FAERS Safety Report 5527694-1 (Version None)
Quarter: 2007Q4

REPORT INFORMATION
  Report Type: 
  Country: None (occurrence: None)
  Receive Date: 20071128
  Receipt Date: 20071121
  Transmission Date: 20080405
  Serious: Yes (Other)
  Sender: FDA-Public Use
  Company Number: US-ROCHE-532801

PATIENT
  Age: 78 Year
  Sex: Female

DRUGS (3)
  1. KLONOPIN [Suspect]
     Route: 065
  2. AMBIEN [Concomitant]
  3. UNSPECIFIED DRUGS [Concomitant]

REACTIONS (1)
  - HYDROCEPHALUS [None]
